FAERS Safety Report 14764723 (Version 1)
Quarter: 2018Q2

REPORT INFORMATION
  Report Type: Spontaneous
  Country: US (occurrence: US)
  Receive Date: 20180416
  Receipt Date: 20180416
  Transmission Date: 20180711
  Serious: No
  Sender: FDA-Public Use
  Company Number: US-VIIV HEALTHCARE LIMITED-US2018063529

PATIENT
  Age: 61 Year
  Sex: Female

DRUGS (11)
  1. JULUCA [Suspect]
     Active Substance: DOLUTEGRAVIR SODIUM\RILPIVIRINE HYDROCHLORIDE
     Indication: HIV INFECTION
     Dosage: 1 DF, QD
     Route: 048
     Dates: start: 20180226, end: 20180318
  2. ASPIRIN (BABY) [Concomitant]
     Active Substance: ASPIRIN
     Dosage: UNK DF, UNK
  3. PRAVASTATIN. [Concomitant]
     Active Substance: PRAVASTATIN
  4. MOBIC [Concomitant]
     Active Substance: MELOXICAM
  5. KEPPRA [Concomitant]
     Active Substance: LEVETIRACETAM
  6. METAMUCIL [Concomitant]
     Active Substance: PLANTAGO SEED
  7. COLACE [Concomitant]
     Active Substance: DOCUSATE SODIUM
  8. FISH OIL [Concomitant]
     Active Substance: FISH OIL
  9. LOTRISONE [Concomitant]
     Active Substance: BETAMETHASONE DIPROPIONATE\CLOTRIMAZOLE
  10. CALCIUM WITH VITAMIN D [Concomitant]
     Active Substance: CALCIUM\VITAMIN D
  11. SINGULAIR [Concomitant]
     Active Substance: MONTELUKAST SODIUM
     Dosage: UNK

REACTIONS (1)
  - Rash [Recovered/Resolved]

NARRATIVE: CASE EVENT DATE: 20180318
